FAERS Safety Report 6422993-3 (Version None)
Quarter: 2009Q4

REPORT INFORMATION
  Report Type: 
  Country: None (occurrence: None)
  Receive Date: 20091028
  Receipt Date: 20091022
  Transmission Date: 20100525
  Serious: Yes (Life-Threatening, Other)
  Sender: FDA-Public Use
  Company Number: 2009002753

PATIENT
  Age: 32 Year
  Sex: Female

DRUGS (3)
  1. PROVIGIL [Suspect]
     Indication: FATIGUE
     Dosage: 200 MG (200 MG, 1 IN 1 D), ORAL; (100 MG, AS REQUIRED), ORAL
     Route: 048
     Dates: start: 20081001
  2. PROVIGIL [Suspect]
     Indication: MULTIPLE SCLEROSIS
     Dosage: 200 MG (200 MG, 1 IN 1 D), ORAL; (100 MG, AS REQUIRED), ORAL
     Route: 048
     Dates: start: 20081001
  3. TYSABRI [Concomitant]

REACTIONS (8)
  - ACNE [None]
  - ANAPHYLACTIC SHOCK [None]
  - ASTHMA [None]
  - EPIDERMAL NECROSIS [None]
  - GENITAL INFECTION FUNGAL [None]
  - HYPERSENSITIVITY [None]
  - IRRITABILITY [None]
  - STEVENS-JOHNSON SYNDROME [None]
